FAERS Safety Report 16778740 (Version 3)
Quarter: 2020Q4

REPORT INFORMATION
  Report Type: Report from Study
  Country: None (occurrence: US)
  Receive Date: 20190906
  Receipt Date: 20201014
  Transmission Date: 20210113
  Serious: Yes (Other)
  Sender: FDA-Public Use
  Company Number: US-ABBVIE-18K-163-2537713-00

PATIENT
  Sex: Male

DRUGS (3)
  1. HUMIRA [Suspect]
     Active Substance: ADALIMUMAB
     Dosage: EVERY 11 TO 13 DAYS?CITRATE FREE
     Route: 058
     Dates: start: 20190725
  2. CORTISONE [Concomitant]
     Active Substance: CORTISONE
     Indication: PRODUCT USED FOR UNKNOWN INDICATION
  3. HUMIRA [Suspect]
     Active Substance: ADALIMUMAB
     Indication: ANKYLOSING SPONDYLITIS
     Dosage: CITRATE FREE
     Route: 058
     Dates: start: 20180822, end: 201906

REACTIONS (31)
  - Mobility decreased [Not Recovered/Not Resolved]
  - Sinus congestion [Unknown]
  - Injection site pain [Unknown]
  - Poor quality sleep [Not Recovered/Not Resolved]
  - Tenderness [Unknown]
  - Musculoskeletal stiffness [Unknown]
  - Basal cell carcinoma [Not Recovered/Not Resolved]
  - Dysstasia [Not Recovered/Not Resolved]
  - Joint swelling [Not Recovered/Not Resolved]
  - Hypophagia [Not Recovered/Not Resolved]
  - Fatigue [Not Recovered/Not Resolved]
  - Arthralgia [Recovering/Resolving]
  - Joint range of motion decreased [Unknown]
  - Acne [Unknown]
  - Musculoskeletal stiffness [Not Recovered/Not Resolved]
  - Neck pain [Not Recovered/Not Resolved]
  - Rash [Unknown]
  - Joint stiffness [Recovering/Resolving]
  - Joint range of motion decreased [Not Recovered/Not Resolved]
  - Loss of personal independence in daily activities [Not Recovered/Not Resolved]
  - General physical health deterioration [Unknown]
  - Back pain [Recovering/Resolving]
  - Muscular weakness [Recovering/Resolving]
  - Muscular weakness [Unknown]
  - Incisional hernia [Unknown]
  - Basal cell carcinoma [Unknown]
  - Crohn^s disease [Unknown]
  - Headache [Unknown]
  - Musculoskeletal stiffness [Unknown]
  - Mobility decreased [Recovering/Resolving]
  - Prostate infection [Recovering/Resolving]

NARRATIVE: CASE EVENT DATE: 2018
